FAERS Safety Report 20732934 (Version 1)
Quarter: 2022Q2

REPORT INFORMATION
  Report Type: Report from Study
  Country: CA (occurrence: CA)
  Receive Date: 20220420
  Receipt Date: 20220420
  Transmission Date: 20220720
  Serious: Yes (Other)
  Sender: FDA-Public Use
  Company Number: CA-ABBVIE-22K-028-4364860-00

PATIENT
  Age: 37 Year
  Sex: Female

DRUGS (1)
  1. HUMIRA [Suspect]
     Active Substance: ADALIMUMAB
     Indication: Crohn^s disease
     Route: 058
     Dates: start: 20120614

REACTIONS (9)
  - Dermal cyst [Unknown]
  - Arthralgia [Not Recovered/Not Resolved]
  - General physical health deterioration [Unknown]
  - Abdominal pain [Unknown]
  - Seasonal allergy [Unknown]
  - Hypoaesthesia [Unknown]
  - Muscular weakness [Unknown]
  - Yellow skin [Unknown]
  - Limb mass [Unknown]

NARRATIVE: CASE EVENT DATE: 20211001
